FAERS Safety Report 4270548-1 (Version None)
Quarter: 2004Q1

REPORT INFORMATION
  Report Type: 
  Country: None (occurrence: None)
  Receive Date: 20040113
  Receipt Date: 20040113
  Transmission Date: 20041129
  Serious: Yes (Disabling)
  Sender: FDA-Public Use
  Company Number: None

PATIENT
  Age: 69 Year
  Sex: Male

DRUGS (2)
  1. ASPIRIN [Suspect]
     Indication: CARDIOVASCULAR DISORDER
     Dosage: 325 MG DAILY ORAL
     Route: 048
     Dates: start: 19980101, end: 20031230
  2. ASPIRIN [Suspect]
     Indication: PROPHYLAXIS
     Dosage: 325 MG DAILY ORAL
     Route: 048
     Dates: start: 19980101, end: 20031230

REACTIONS (3)
  - FALL [None]
  - HAEMORRHAGE INTRACRANIAL [None]
  - NERVOUS SYSTEM DISORDER [None]
